FAERS Safety Report 4592549-6 (Version None)
Quarter: 2005Q1

REPORT INFORMATION
  Report Type: 
  Country: None (occurrence: None)
  Receive Date: 20050222
  Receipt Date: 20050203
  Transmission Date: 20050727
  Serious: Yes (Other)
  Sender: FDA-Public Use
  Company Number: SP00384

PATIENT
  Age: 80 Year
  Sex: Female
  Weight: 98 kg

DRUGS (4)
  1. COLAZAL [Suspect]
     Indication: CROHN'S DISEASE
     Dosage: 2.25 G/TID, ORAL
     Route: 048
     Dates: start: 20041111
  2. PREDNISONE [Concomitant]
  3. FOSAMAX [Concomitant]
  4. SYNTHROID [Concomitant]

REACTIONS (1)
  - HAEMORRHAGE SUBEPIDERMAL [None]
